FAERS Safety Report 7688424-0 (Version None)
Quarter: 2011Q3

REPORT INFORMATION
  Report Type: 
  Country: None (occurrence: None)
  Receive Date: 20110817
  Receipt Date: 20110811
  Transmission Date: 20111222
  Serious: Yes (Hospitalization)
  Sender: FDA-Public Use
  Company Number: DK-PFIZER INC-2011150544

PATIENT
  Age: 58 Year
  Sex: Female
  Weight: 55 kg

DRUGS (2)
  1. SUNITINIB MALATE [Suspect]
     Dosage: 37.5 MG (FOR 41 DAYS)
     Dates: start: 20091201, end: 20100201
  2. SUNITINIB MALATE [Suspect]
     Indication: METASTATIC RENAL CELL CARCINOMA
     Dosage: 50 MG (FOR 28 DAYS)
     Dates: start: 20090728, end: 20091201

REACTIONS (2)
  - CARDIAC FAILURE [None]
  - PERICARDIAL EFFUSION [None]
